FAERS Safety Report 11364341 (Version 9)
Quarter: 2016Q3

REPORT INFORMATION
  Report Type: Spontaneous
  Country: US (occurrence: US)
  Receive Date: 20150811
  Receipt Date: 20160718
  Transmission Date: 20161109
  Serious: Yes (Hospitalization, Other)
  Sender: FDA-Public Use
  Company Number: US-ASTELLAS-2015US028066

PATIENT
  Age: 69 Year
  Sex: Male

DRUGS (5)
  1. XTANDI [Interacting]
     Active Substance: ENZALUTAMIDE
     Indication: PROSTATE CANCER
  2. SAVAYSA [Interacting]
     Active Substance: EDOXABAN TOSYLATE
     Indication: ATRIAL FIBRILLATION
     Dosage: UNK, UNKNOWN FREQ.
     Route: 065
  3. MYRBETRIQ [Suspect]
     Active Substance: MIRABEGRON
     Indication: NOCTURIA
     Dosage: UNK, ONCE DAILY (IN MORNING)
     Route: 065
  4. TOVIAZ [Concomitant]
     Active Substance: FESOTERODINE FUMARATE
     Indication: NOCTURIA
     Dosage: UNK, ONCE DAILY (AT NIGHT)
     Route: 065
  5. XTANDI [Suspect]
     Active Substance: ENZALUTAMIDE
     Indication: PROSTATE CANCER STAGE IV
     Route: 048
     Dates: start: 201501

REACTIONS (19)
  - Arthralgia [Recovering/Resolving]
  - Skin disorder [Unknown]
  - Sleep disorder [Unknown]
  - Nocturia [Unknown]
  - Blood pressure abnormal [Unknown]
  - Drug interaction [Unknown]
  - Hypersensitivity [Recovered/Resolved]
  - Muscular weakness [Recovering/Resolving]
  - Back pain [Recovering/Resolving]
  - Urinary tract infection [Unknown]
  - Prostatic specific antigen increased [Not Recovered/Not Resolved]
  - Insomnia [Unknown]
  - Atrial fibrillation [Unknown]
  - Hip arthroplasty [Not Recovered/Not Resolved]
  - Fatigue [Unknown]
  - Sneezing [Unknown]
  - Back pain [Not Recovered/Not Resolved]
  - Prostatic specific antigen increased [Unknown]
  - Arthralgia [Unknown]

NARRATIVE: CASE EVENT DATE: 201603
